FAERS Safety Report 17647540 (Version 1)
Quarter: 2020Q2

REPORT INFORMATION
  Report Type: Spontaneous
  Country: CN (occurrence: CN)
  Receive Date: 20200409
  Receipt Date: 20200409
  Transmission Date: 20200713
  Serious: Yes (Other)
  Sender: FDA-Public Use
  Company Number: CN-ROCHE-2574645

PATIENT
  Age: 61 Year
  Sex: Male

DRUGS (19)
  1. PACLITAXEL. [Concomitant]
     Active Substance: PACLITAXEL
     Dosage: 6 CYCLES
     Route: 065
     Dates: start: 20171101
  2. DOCETAXEL. [Concomitant]
     Active Substance: DOCETAXEL
     Dosage: 9 CYCLES
     Route: 065
     Dates: start: 20190515, end: 201911
  3. IRINOTECAN [Concomitant]
     Active Substance: IRINOTECAN
     Route: 065
     Dates: start: 20191127
  4. CATEQUENTINIB. [Concomitant]
     Active Substance: CATEQUENTINIB
     Route: 065
     Dates: start: 20191217
  5. FLUOROURACIL. [Concomitant]
     Active Substance: FLUOROURACIL
     Dosage: FOLFLOX REGIMEN 3 CYCLES
     Route: 065
     Dates: start: 202001
  6. OXALIPLATIN. [Concomitant]
     Active Substance: OXALIPLATIN
     Indication: GASTRIC CANCER
     Dosage: XELOX REGIMEN 6 TIMES
     Route: 065
     Dates: start: 2007
  7. TEGAFUR,GIMERACIL AND OTERACIL POTASSIUM [Concomitant]
     Active Substance: GIMERACIL\OTERACIL\TEGAFUR
     Dosage: DAY1-14, EVERY 3 WEEKS AS ONE CYCLE
     Route: 065
     Dates: start: 2016, end: 201710
  8. APATINIB [Concomitant]
     Active Substance: APATINIB
     Dosage: 7 CYCLES
     Route: 065
     Dates: start: 20180920
  9. APATINIB [Concomitant]
     Active Substance: APATINIB
     Dosage: 9 CYCLES
     Route: 065
     Dates: start: 20190515, end: 201911
  10. TEGAFUR,GIMERACIL AND OTERACIL POTASSIUM [Concomitant]
     Active Substance: GIMERACIL\OTERACIL\TEGAFUR
     Dosage: 7 CYCLES
     Route: 065
     Dates: start: 20180920
  11. PACLITAXEL. [Concomitant]
     Active Substance: PACLITAXEL
     Dosage: 16 CYCLES
     Route: 065
     Dates: start: 201809
  12. IRINOTECAN [Concomitant]
     Active Substance: IRINOTECAN
     Route: 065
     Dates: start: 20191217
  13. XELODA [Suspect]
     Active Substance: CAPECITABINE
     Indication: GASTRIC CANCER
     Dosage: XELOX REGIMEN 6 TIMES
     Route: 048
     Dates: start: 2007
  14. OXALIPLATIN. [Concomitant]
     Active Substance: OXALIPLATIN
     Dosage: SOX REGIMEN 8 CYLCES
     Route: 065
     Dates: start: 20160405, end: 20161008
  15. OXALIPLATIN. [Concomitant]
     Active Substance: OXALIPLATIN
     Dosage: FOLFLOX REGIMEN 3 CYCLES
     Route: 065
     Dates: start: 202001
  16. AVASTIN [Suspect]
     Active Substance: BEVACIZUMAB
     Indication: GASTRIC CANCER
     Dosage: 3 CYCLES
     Route: 065
     Dates: start: 202001
  17. TEGAFUR,GIMERACIL AND OTERACIL POTASSIUM [Concomitant]
     Active Substance: GIMERACIL\OTERACIL\TEGAFUR
     Dosage: SOX REGIMEN 8 CYLCES
     Route: 065
     Dates: start: 20160405, end: 20161008
  18. CATEQUENTINIB. [Concomitant]
     Active Substance: CATEQUENTINIB
     Route: 065
     Dates: start: 20191127
  19. CALCIUM FOLINATE [Concomitant]
     Active Substance: LEUCOVORIN CALCIUM
     Dosage: FOLFLOX REGIMEN 3 CYCLES
     Route: 065
     Dates: start: 202001

REACTIONS (10)
  - Hepatic cyst [Unknown]
  - Spinal osteoarthritis [Unknown]
  - Bone marrow failure [Unknown]
  - Liver injury [Unknown]
  - Palmar-plantar erythrodysaesthesia syndrome [Unknown]
  - Pulmonary pneumatocele [Unknown]
  - Renal cyst [Unknown]
  - Prostatic calcification [Unknown]
  - Lacunar infarction [Unknown]
  - Cholelithiasis [Unknown]
